FAERS Safety Report 10150364 (Version 2)
Quarter: 2014Q3

REPORT INFORMATION
  Report Type: Spontaneous
  Country: US (occurrence: US)
  Receive Date: 20140502
  Receipt Date: 20140729
  Transmission Date: 20150326
  Serious: Yes (Other)
  Sender: FDA-Public Use
  Company Number: US-GILEAD-2014-0101417

PATIENT
  Sex: Male
  Weight: 73.92 kg

DRUGS (12)
  1. ASPIRIN 81 [Concomitant]
     Dosage: UNK
     Dates: start: 20121018
  2. MORPHINE SULFATE. [Concomitant]
     Active Substance: MORPHINE SULFATE
     Dosage: UNK
     Dates: start: 20120906
  3. LETAIRIS [Suspect]
     Active Substance: AMBRISENTAN
     Indication: PULMONARY HYPERTENSION
     Dosage: 10 MG, QD
     Route: 065
     Dates: start: 20131002
  4. LETAIRIS [Suspect]
     Active Substance: AMBRISENTAN
     Indication: EISENMENGER^S SYNDROME
  5. POTASSIUM CHLORIDE. [Concomitant]
     Active Substance: POTASSIUM CHLORIDE
     Dosage: UNK
     Dates: start: 20121029
  6. LETAIRIS [Suspect]
     Active Substance: AMBRISENTAN
     Indication: UNIVENTRICULAR HEART
  7. LETAIRIS [Suspect]
     Active Substance: AMBRISENTAN
     Indication: HEART DISEASE CONGENITAL
  8. SILDENAFIL CITRATE. [Concomitant]
     Active Substance: SILDENAFIL CITRATE
     Dosage: UNK
     Dates: start: 20130425
  9. DIGOXIN. [Concomitant]
     Active Substance: DIGOXIN
     Dosage: UNK
     Dates: start: 20121008
  10. FUROSEMIDE. [Concomitant]
     Active Substance: FUROSEMIDE
     Dosage: UNK
     Dates: start: 20121018
  11. ENDOCET [Concomitant]
     Active Substance: ACETAMINOPHEN\OXYCODONE HYDROCHLORIDE
     Indication: PAIN
     Dosage: UNK
     Dates: start: 20120608
  12. LETAIRIS [Suspect]
     Active Substance: AMBRISENTAN
     Indication: PULMONARY VALVE STENOSIS

REACTIONS (2)
  - Non-cardiac chest pain [Unknown]
  - Pulmonary artery dilatation [Unknown]
